FAERS Safety Report 7234884-9 (Version None)
Quarter: 2011Q1

REPORT INFORMATION
  Report Type: 
  Country: None (occurrence: None)
  Receive Date: 20110120
  Receipt Date: 20110118
  Transmission Date: 20110831
  Serious: Yes (Other)
  Sender: FDA-Public Use
  Company Number: US-PFIZER INC-2011012391

PATIENT
  Sex: Female
  Weight: 88 kg

DRUGS (5)
  1. CALCIUM [Concomitant]
     Indication: OSTEOPOROSIS
     Dosage: UNK
  2. ARTHROTEC [Suspect]
     Indication: ARTHRITIS
     Dosage: 75/200 MG/MCG, 2X/DAY
     Route: 048
     Dates: start: 20110111
  3. ACIPHEX [Concomitant]
     Indication: GASTROOESOPHAGEAL REFLUX DISEASE
     Dosage: 40 MG, DAILY
  4. VITAMIN B-12 [Concomitant]
     Dosage: UNK
  5. PEPCID [Concomitant]
     Indication: GASTROOESOPHAGEAL REFLUX DISEASE
     Dosage: 80 MG, UNK

REACTIONS (2)
  - UTERINE HAEMORRHAGE [None]
  - DRUG DOSE OMISSION [None]
